FAERS Safety Report 6701419-6 (Version None)
Quarter: 2010Q2

REPORT INFORMATION
  Report Type: 
  Country: None (occurrence: None)
  Receive Date: 20100429
  Receipt Date: 20100416
  Transmission Date: 20101027
  Serious: Yes (Hospitalization)
  Sender: FDA-Public Use
  Company Number: DE-RANBAXY-2010RR-32043

PATIENT
  Age: 58 Year
  Sex: Male
  Weight: 100 kg

DRUGS (9)
  1. FLUNEURIN [Suspect]
     Indication: PANIC DISORDER
     Dosage: 80-100 MG
  2. FLUNEURIN [Suspect]
     Indication: AGORAPHOBIA
  3. REDUCTIL [Suspect]
     Indication: WEIGHT DECREASED
     Dosage: 15 MG, QD
  4. FLUOXETINE [Concomitant]
     Indication: AGORAPHOBIA
     Dosage: 40 MG, UNK
  5. FLUOXETINE [Concomitant]
     Indication: PANIC DISORDER
  6. AMLODIPINE [Concomitant]
     Indication: HYPERTENSION
     Dosage: 5 MG, BID
  7. PROMETHAZINE [Concomitant]
     Indication: PANIC DISORDER
     Dosage: 50 MG, QID
  8. ENALAPRIL MALEATE [Concomitant]
     Indication: HYPERTENSION
     Dosage: 20 MG, UNK
  9. HYDROCHLOROTHIAZIDE [Concomitant]
     Indication: HYPERTENSION
     Dosage: 25 MG, UNK

REACTIONS (2)
  - DRUG INTERACTION [None]
  - SEROTONIN SYNDROME [None]
